FAERS Safety Report 10078283 (Version 4)
Quarter: 2014Q3

REPORT INFORMATION
  Report Type: Report from Study
  Country: CH (occurrence: CH)
  Receive Date: 20140415
  Receipt Date: 20140707
  Transmission Date: 20150326
  Serious: Yes (Death, Life-Threatening, Hospitalization)
  Sender: FDA-Public Use
  Company Number: CH-BRISTOL-MYERS SQUIBB COMPANY-20609038

PATIENT
  Age: 59 Year
  Sex: Female

DRUGS (1)
  1. CETUXIMAB [Suspect]
     Active Substance: CETUXIMAB
     Indication: HEAD AND NECK CANCER
     Dosage: 422MG:23OCT13-07NOV13,14NOV13-27NOV13.?676MG:03DEC13-09DEC13.?780MG:17DEC13-25FEB14.
     Route: 042
     Dates: start: 20131015

REACTIONS (2)
  - Stress cardiomyopathy [Not Recovered/Not Resolved]
  - Stridor [Fatal]

NARRATIVE: CASE EVENT DATE: 20140326
